FAERS Safety Report 10408616 (Version 1)
Quarter: 2014Q1

REPORT INFORMATION
  Report Type: Spontaneous
  Country: US (occurrence: None)
  Receive Date: 20130225
  Receipt Date: 20130225
  Transmission Date: 20141002
  Serious: Yes (Hospitalization)
  Sender: FDA-Public Use
  Company Number: 368165N

PATIENT
  Age: 70 Year
  Sex: Female

DRUGS (2)
  1. VICTOZA [Suspect]
     Indication: TYPE 2 DIABETES MELLITUS
     Route: 058
  2. LANTUS [Suspect]
     Indication: TYPE 2 DIABETES MELLITUS
     Dosage: 40 UNITS DAILY, SUBCUTANEOUS
     Route: 058
     Dates: start: 201207

REACTIONS (6)
  - Blood glucose increased [None]
  - Insomnia [None]
  - Skin discolouration [None]
  - Pain [None]
  - Skin atrophy [None]
  - Rash [None]
